FAERS Safety Report 6329442-4 (Version None)
Quarter: 2009Q3

REPORT INFORMATION
  Report Type: 
  Country: None (occurrence: None)
  Receive Date: 20090826
  Receipt Date: 20090819
  Transmission Date: 20100115
  Serious: Yes (Hospitalization)
  Sender: FDA-Public Use
  Company Number: B0589264A

PATIENT
  Age: 50 Year
  Sex: Male

DRUGS (5)
  1. ARIXTRA [Suspect]
     Indication: THROMBOSIS PROPHYLAXIS
     Dosage: 2.5MG PER DAY
     Route: 058
     Dates: start: 20090627, end: 20090727
  2. DAFALGAN [Concomitant]
     Indication: PAIN
     Route: 065
     Dates: start: 20090627
  3. CONTRAMAL [Concomitant]
     Indication: PAIN
     Route: 065
     Dates: start: 20090627
  4. INEXIUM [Concomitant]
     Indication: DRUG USE FOR UNKNOWN INDICATION
     Route: 065
     Dates: start: 20090701
  5. SPECIAFOLDINE [Concomitant]
     Route: 065
     Dates: start: 20090629

REACTIONS (2)
  - ARTHRALGIA [None]
  - PURPURA [None]
